FAERS Safety Report 7061760-7 (Version None)
Quarter: 2010Q4

REPORT INFORMATION
  Report Type: 
  Country: None (occurrence: None)
  Receive Date: 20101026
  Receipt Date: 20101018
  Transmission Date: 20110411
  Serious: Yes (Other)
  Sender: FDA-Public Use
  Company Number: BR-ROCHE-734681

PATIENT
  Sex: Female
  Weight: 54 kg

DRUGS (4)
  1. ROACUTAN [Suspect]
     Dosage: FIRST TREATMENT
     Route: 048
  2. ROACUTAN [Suspect]
     Dosage: DOSE REPORTED AS 10 AND 20 MG
     Route: 048
     Dates: start: 20091001, end: 20091201
  3. ROACUTAN [Suspect]
     Route: 048
  4. DIANE-35 [Concomitant]
     Indication: CONTRACEPTION

REACTIONS (5)
  - DISCOMFORT [None]
  - FACIAL BONES FRACTURE [None]
  - NASAL DRYNESS [None]
  - PRURITUS [None]
  - ROAD TRAFFIC ACCIDENT [None]
